FAERS Safety Report 5874036-8 (Version None)
Quarter: 2008Q3

REPORT INFORMATION
  Report Type: 
  Country: None (occurrence: None)
  Receive Date: 20080829
  Receipt Date: 20080819
  Transmission Date: 20090109
  Serious: Yes (Other)
  Sender: FDA-Public Use
  Company Number: 2008SP017053

PATIENT

DRUGS (2)
  1. CELESTAMINE TAB [Suspect]
     Indication: URTICARIA
     Dosage: PO
     Route: 048
  2. ATARAX [Suspect]
     Indication: URTICARIA

REACTIONS (2)
  - HEPATIC FUNCTION ABNORMAL [None]
  - JAUNDICE [None]
